FAERS Safety Report 4422795-3 (Version None)
Quarter: 2004Q3

REPORT INFORMATION
  Report Type: 
  Country: None (occurrence: None)
  Receive Date: 20040719
  Receipt Date: 20031008
  Transmission Date: 20050211
  Serious: Yes (Hospitalization, Other)
  Sender: FDA-Public Use
  Company Number: M03-INT-101

PATIENT

DRUGS (1)
  1. INTEGRILIN [Suspect]
     Dates: start: 20030917, end: 20030917

REACTIONS (3)
  - HAEMATEMESIS [None]
  - HAEMOGLOBIN DECREASED [None]
  - RETROPERITONEAL HAEMORRHAGE [None]
